FAERS Safety Report 25096246 (Version 1)
Quarter: 2025Q1

REPORT INFORMATION
  Report Type: Spontaneous
  Country: FR (occurrence: FR)
  Receive Date: 20250319
  Receipt Date: 20250319
  Transmission Date: 20250409
  Serious: Yes (Hospitalization)
  Sender: MYLAN
  Company Number: None

PATIENT
  Age: 74 Year
  Sex: Female
  Weight: 65 kg

DRUGS (12)
  1. FENTANYL [Suspect]
     Active Substance: FENTANYL
     Indication: Product used for unknown indication
     Dosage: 25 MICROGRAM, Q3D
     Dates: start: 20200101
  2. FENTANYL [Suspect]
     Active Substance: FENTANYL
     Dosage: 25 MICROGRAM, Q3D
     Route: 003
     Dates: start: 20200101
  3. FENTANYL [Suspect]
     Active Substance: FENTANYL
     Dosage: 25 MICROGRAM, Q3D
     Route: 003
     Dates: start: 20200101
  4. FENTANYL [Suspect]
     Active Substance: FENTANYL
     Dosage: 25 MICROGRAM, Q3D
     Dates: start: 20200101
  5. RILUTEK [Suspect]
     Active Substance: RILUZOLE
     Indication: Amyotrophic lateral sclerosis
     Dosage: 50 MILLIGRAM, BID
     Dates: start: 20230801, end: 20240206
  6. RILUTEK [Suspect]
     Active Substance: RILUZOLE
     Dosage: 50 MILLIGRAM, BID
     Route: 048
     Dates: start: 20230801, end: 20240206
  7. RILUTEK [Suspect]
     Active Substance: RILUZOLE
     Dosage: 50 MILLIGRAM, BID
     Route: 048
     Dates: start: 20230801, end: 20240206
  8. RILUTEK [Suspect]
     Active Substance: RILUZOLE
     Dosage: 50 MILLIGRAM, BID
     Dates: start: 20230801, end: 20240206
  9. .ALPHA.-TOCOPHEROL ACETATE, D- [Suspect]
     Active Substance: .ALPHA.-TOCOPHEROL ACETATE, D-
     Indication: Amyotrophic lateral sclerosis
     Dosage: 50 MILLIGRAM, QD
     Dates: start: 20230801, end: 20240206
  10. .ALPHA.-TOCOPHEROL ACETATE, D- [Suspect]
     Active Substance: .ALPHA.-TOCOPHEROL ACETATE, D-
     Dosage: 50 MILLIGRAM, QD
     Route: 048
     Dates: start: 20230801, end: 20240206
  11. .ALPHA.-TOCOPHEROL ACETATE, D- [Suspect]
     Active Substance: .ALPHA.-TOCOPHEROL ACETATE, D-
     Dosage: 50 MILLIGRAM, QD
     Route: 048
     Dates: start: 20230801, end: 20240206
  12. .ALPHA.-TOCOPHEROL ACETATE, D- [Suspect]
     Active Substance: .ALPHA.-TOCOPHEROL ACETATE, D-
     Dosage: 50 MILLIGRAM, QD
     Dates: start: 20230801, end: 20240206

REACTIONS (1)
  - Pancreatitis acute [Recovered/Resolved]

NARRATIVE: CASE EVENT DATE: 20240205
